FAERS Safety Report 17742061 (Version 1)
Quarter: 2020Q2

REPORT INFORMATION
  Report Type: Report from Study
  Country: IN (occurrence: IN)
  Receive Date: 20200504
  Receipt Date: 20200504
  Transmission Date: 20200714
  Serious: Yes (Other)
  Sender: FDA-Public Use
  Company Number: NVSC2020IN118445

PATIENT
  Age: 34 Year
  Sex: Male
  Weight: 85 kg

DRUGS (1)
  1. GALVUS MET [Suspect]
     Active Substance: METFORMIN HYDROCHLORIDE\VILDAGLIPTIN
     Indication: DIABETES MELLITUS
     Dosage: (50/500), BID
     Route: 048
     Dates: start: 2015

REACTIONS (7)
  - Hyperglycaemia [Unknown]
  - Vitamin D deficiency [Unknown]
  - Thyroid disorder [Unknown]
  - Body mass index abnormal [Unknown]
  - Blood cholesterol abnormal [Unknown]
  - Weight abnormal [Unknown]
  - Glycosylated haemoglobin increased [Unknown]

NARRATIVE: CASE EVENT DATE: 2015
